FAERS Safety Report 8558723-9 (Version None)
Quarter: 2012Q3

REPORT INFORMATION
  Report Type: 
  Country: None (occurrence: None)
  Receive Date: 20120801
  Receipt Date: 20120726
  Transmission Date: 20120928
  Serious: Yes (Other)
  Sender: FDA-Public Use
  Company Number: US-TEVA-351127USA

PATIENT
  Sex: Female

DRUGS (2)
  1. CLOPIDOGREL [Suspect]
     Dosage: 75 MILLIGRAM;
  2. ACETYLSALICYLIC ACID SRT [Concomitant]
     Dosage: 325 MILLIGRAM;

REACTIONS (2)
  - INTRACARDIAC THROMBUS [None]
  - ACUTE MYOCARDIAL INFARCTION [None]
